FAERS Safety Report 6085346-6 (Version None)
Quarter: 2009Q1

REPORT INFORMATION
  Report Type: 
  Country: None (occurrence: None)
  Receive Date: 20090220
  Receipt Date: 20090209
  Transmission Date: 20090719
  Serious: Yes (Death, Other)
  Sender: FDA-Public Use
  Company Number: JP-PFIZER INC-2009169020

PATIENT

DRUGS (4)
  1. NORVASC [Suspect]
     Indication: HYPERTENSION
     Dosage: 10 MG/DAY
     Route: 048
  2. INSULIN [Suspect]
     Indication: HYPERGLYCAEMIA
     Dosage: 24 UNITS/DAY
     Route: 030
  3. ADALAT CC [Concomitant]
     Route: 048
  4. NEORAL [Concomitant]
     Route: 048

REACTIONS (2)
  - ASCITES [None]
  - PULMONARY OEDEMA [None]
